FAERS Safety Report 5146193-2 (Version None)
Quarter: 2006Q4

REPORT INFORMATION
  Report Type: 
  Country: None (occurrence: None)
  Receive Date: 20061106
  Receipt Date: 20061106
  Transmission Date: 20070319
  Serious: Yes (Hospitalization)
  Sender: FDA-Public Use
  Company Number: None

PATIENT
  Age: 15 Year
  Sex: Female
  Weight: 61.9 kg

DRUGS (13)
  1. RITUXIMAB [Suspect]
     Indication: ANAEMIA HAEMOLYTIC AUTOIMMUNE
     Dosage: 700 MG Q WEEK IV
     Route: 042
     Dates: start: 20061013
  2. RITUXIMAB [Suspect]
     Indication: ANAEMIA HAEMOLYTIC AUTOIMMUNE
     Dosage: 700 MG Q WEEK IV
     Route: 042
     Dates: start: 20061020
  3. RITUXIMAB [Suspect]
     Indication: ANAEMIA HAEMOLYTIC AUTOIMMUNE
     Dosage: 700 MG Q WEEK IV
     Route: 042
     Dates: start: 20061027
  4. ATENOLOL [Concomitant]
  5. CALCIUM CARBONATE [Concomitant]
  6. COLACE [Concomitant]
  7. LANSOPRAZOLE [Concomitant]
  8. LOSARTAN POSTASSIUM [Concomitant]
  9. CELLCEPT [Concomitant]
  10. NIFEDIPINE [Concomitant]
  11. PREDNISONE TAB [Concomitant]
  12. METHYLPREDNISOLONE [Concomitant]
  13. TORSEMIDE [Concomitant]

REACTIONS (1)
  - HERPES ZOSTER [None]
